APPROVED DRUG PRODUCT: VIADUR
Active Ingredient: LEUPROLIDE ACETATE
Strength: EQ 65MG BASE
Dosage Form/Route: IMPLANT;IMPLANTATION
Application: N021088 | Product #001
Applicant: ORTHO MCNEIL JANSSEN PHARMACEUTICAL INC
Approved: Mar 3, 2000 | RLD: No | RS: No | Type: DISCN